FAERS Safety Report 4874853-7 (Version None)
Quarter: 2006Q1

REPORT INFORMATION
  Report Type: 
  Country: None (occurrence: None)
  Receive Date: 20060104
  Receipt Date: 20051222
  Transmission Date: 20060701
  Serious: Yes (Other)
  Sender: FDA-Public Use
  Company Number: 2005173393

PATIENT
  Age: 55 Year
  Sex: Female

DRUGS (1)
  1. ZOLOFT [Suspect]
     Indication: FIBROMYALGIA
     Dosage: 50 MG (50 MG 1 IN 1D) ORAL
     Route: 048
     Dates: start: 20040101, end: 20050901

REACTIONS (1)
  - MACULAR DEGENERATION [None]
